FAERS Safety Report 24246901 (Version 2)
Quarter: 2024Q3

REPORT INFORMATION
  Report Type: Spontaneous
  Country: BE (occurrence: BE)
  Receive Date: 20240826
  Receipt Date: 20240913
  Transmission Date: 20241017
  Serious: Yes (Life-Threatening, Hospitalization, Other)
  Sender: AUROBINDO
  Company Number: BE-MLMSERVICE-20240809-PI141353-00034-1

PATIENT
  Age: 57 Year
  Sex: Male

DRUGS (8)
  1. AMIODARONE [Suspect]
     Active Substance: AMIODARONE
     Indication: Atrial fibrillation
     Dosage: UNK (AMIODARONE FOR 3 YEARS FOLLOWING SEVERAL EPISODES)
     Route: 065
  2. AMIODARONE [Suspect]
     Active Substance: AMIODARONE
     Indication: Ventricular tachycardia
  3. BISOPROLOL [Suspect]
     Active Substance: BISOPROLOL\BISOPROLOL FUMARATE
     Indication: Ventricular tachycardia
     Dosage: 10 MILLIGRAM, ONCE A DAY
     Route: 065
  4. PROPYLTHIOURACIL [Suspect]
     Active Substance: PROPYLTHIOURACIL
     Indication: Secondary hyperthyroidism
     Dosage: 200 MILLIGRAM, 3 TIMES A DAY
     Route: 065
  5. FUROSEMIDE [Suspect]
     Active Substance: FUROSEMIDE
     Indication: Diuretic therapy
     Dosage: 20 MILLIGRAM, ONCE A DAY
     Route: 065
  6. ALDACTONE [Suspect]
     Active Substance: SPIRONOLACTONE
     Indication: Hypervolaemia
     Dosage: 12.5 MILLIGRAM, ONCE A DAY
     Route: 065
  7. DEXAMETHASONE [Suspect]
     Active Substance: DEXAMETHASONE
     Indication: Ventricular tachycardia
     Dosage: UNK
     Route: 065
  8. DEXAMETHASONE [Suspect]
     Active Substance: DEXAMETHASONE
     Indication: Thyrotoxic crisis

REACTIONS (10)
  - Secondary hyperthyroidism [Unknown]
  - Hepatic function abnormal [Recovering/Resolving]
  - Thyrotoxic crisis [Recovering/Resolving]
  - Dilated cardiomyopathy [Recovering/Resolving]
  - Atrial fibrillation [Recovering/Resolving]
  - Hyperthyroidism [Recovering/Resolving]
  - Heart failure with reduced ejection fraction [Recovering/Resolving]
  - Toxic goitre [Recovering/Resolving]
  - Gastrointestinal disorder [Recovering/Resolving]
  - Drug ineffective [Unknown]
